FAERS Safety Report 23618789 (Version 4)
Quarter: 2024Q2

REPORT INFORMATION
  Report Type: Spontaneous
  Country: US (occurrence: US)
  Receive Date: 20240311
  Receipt Date: 20240611
  Transmission Date: 20240716
  Serious: Yes (Other)
  Sender: FDA-Public Use
  Company Number: US-PFIZER INC-202400059374

PATIENT
  Age: 86 Year
  Sex: Female
  Weight: 66.213 kg

DRUGS (8)
  1. PAXLOVID [Suspect]
     Active Substance: NIRMATRELVIR\RITONAVIR
     Indication: COVID-19 treatment
     Dosage: [NIRMATRELVIR 300 MG]/[RITONAVIR 100 MG]; 2X/DAY
     Route: 048
     Dates: start: 20240304, end: 20240306
  2. DIOVAN [Concomitant]
     Active Substance: VALSARTAN
     Dosage: 160 MG, 1X/DAY
  3. PRAVASTATIN SODIUM [Concomitant]
     Active Substance: PRAVASTATIN SODIUM
     Indication: Blood cholesterol increased
     Dosage: IN EVENING (STOPPED WHILE TAKING PAXLOVID)
     Dates: start: 201501
  4. PANTOPRAZOLE [Concomitant]
     Active Substance: PANTOPRAZOLE
     Indication: Gastrooesophageal reflux disease
     Dosage: THIRTY MINUTES BEFORE BREAKFAST IN THE MORING
  5. ZOLPIDEM TARTRATE [Concomitant]
     Active Substance: ZOLPIDEM TARTRATE
     Indication: Insomnia
     Dosage: 10 MG
  6. TIMOLOL MALEATE [Concomitant]
     Active Substance: TIMOLOL MALEATE
     Indication: Glaucoma
     Dosage: ONE DROP IN EACH EYE - MORNING
  7. CARAFATE [Concomitant]
     Active Substance: SUCRALFATE
     Indication: Gastrooesophageal reflux disease
     Dosage: TAKE RARELY BUT WHEN NEDDED
  8. MELOXICAM [Concomitant]
     Active Substance: MELOXICAM
     Indication: Spondylitis
     Dosage: TAKE RARELY BUT WHEN NEEDED

REACTIONS (6)
  - Product use complaint [Recovering/Resolving]
  - Choking [Recovering/Resolving]
  - Dysphagia [Unknown]
  - Dysgeusia [Unknown]
  - Intentional product misuse [Unknown]
  - Wrong technique in product usage process [Unknown]

NARRATIVE: CASE EVENT DATE: 20240301
